FAERS Safety Report 19119709 (Version 1)
Quarter: 2021Q2

REPORT INFORMATION
  Report Type: Other
  Country: US (occurrence: US)
  Receive Date: 20210412
  Receipt Date: 20210412
  Transmission Date: 20210717
  Serious: Yes (Hospitalization)
  Sender: FDA-Public Use
  Company Number: US-AJANTA PHARMA USA INC.-2109177

PATIENT
  Sex: Female

DRUGS (1)
  1. CLARITHROMYCIN (ANDA 206714) [Suspect]
     Active Substance: CLARITHROMYCIN
     Indication: HELICOBACTER INFECTION

REACTIONS (1)
  - Hallucination, visual [Recovered/Resolved]
